FAERS Safety Report 5729866-X (Version None)
Quarter: 2008Q2

REPORT INFORMATION
  Report Type: 
  Country: None (occurrence: None)
  Receive Date: 20080502
  Receipt Date: 20080422
  Transmission Date: 20081010
  Serious: Yes (Hospitalization)
  Sender: FDA-Public Use
  Company Number: 163-21880-08041624

PATIENT
  Age: 66 Year
  Sex: Female

DRUGS (1)
  1. REVLIMID [Suspect]
     Indication: MYELODYSPLASTIC SYNDROME
     Dosage: 10 MG, QD X21 DAYS, ORAL
     Route: 048
     Dates: start: 20080103

REACTIONS (2)
  - CARDIAC FAILURE CONGESTIVE [None]
  - PERFORMANCE STATUS DECREASED [None]
